FAERS Safety Report 4689259-3 (Version None)
Quarter: 2005Q2

REPORT INFORMATION
  Report Type: 
  Country: None (occurrence: None)
  Receive Date: 20050613
  Receipt Date: 20050310
  Transmission Date: 20051028
  Serious: Yes (Hospitalization, Disabling)
  Sender: FDA-Public Use
  Company Number: US-MERCK-0503USA02275

PATIENT
  Age: 47 Year
  Sex: Female
  Weight: 82 kg

DRUGS (9)
  1. VIOXX [Suspect]
     Indication: OSTEOARTHRITIS
     Route: 048
     Dates: start: 20030401, end: 20030101
  2. VIOXX [Suspect]
     Route: 048
     Dates: start: 20040401, end: 20040101
  3. SINGULAIR [Concomitant]
     Route: 048
  4. PREDNISONE [Concomitant]
     Route: 065
     Dates: start: 20040510
  5. ALUPENT [Concomitant]
     Route: 065
  6. NAPROXEN [Concomitant]
     Route: 065
     Dates: start: 20030101, end: 20040101
  7. ADVAIR [Concomitant]
     Route: 065
  8. ALBUTEROL [Concomitant]
     Route: 065
  9. ALESSE [Concomitant]
     Route: 065

REACTIONS (27)
  - ASTHMA [None]
  - BLOOD CHOLESTEROL INCREASED [None]
  - BLOOD PRESSURE INCREASED [None]
  - BLOOD TRIGLYCERIDES INCREASED [None]
  - BRADYCARDIA [None]
  - CEREBROVASCULAR ACCIDENT [None]
  - CHEST PAIN [None]
  - COUGH [None]
  - CREPITATIONS [None]
  - DIABETES MELLITUS [None]
  - DIZZINESS [None]
  - DYSPEPSIA [None]
  - DYSPNOEA [None]
  - EMOTIONAL DISTRESS [None]
  - EYE PAIN [None]
  - FLATULENCE [None]
  - HIGH DENSITY LIPOPROTEIN INCREASED [None]
  - HORDEOLUM [None]
  - HYPERTENSION [None]
  - HYPOTENSION [None]
  - LOSS OF CONSCIOUSNESS [None]
  - LOW DENSITY LIPOPROTEIN INCREASED [None]
  - OCULAR HYPERAEMIA [None]
  - SYNCOPE [None]
  - SYNCOPE VASOVAGAL [None]
  - TACHYCARDIA [None]
  - WHEEZING [None]
